FAERS Safety Report 10294252 (Version 1)
Quarter: 2014Q3

REPORT INFORMATION
  Report Type: Spontaneous
  Country: NO (occurrence: NO)
  Receive Date: 20140710
  Receipt Date: 20140710
  Transmission Date: 20150326
  Serious: Yes (Hospitalization)
  Sender: FDA-Public Use
  Company Number: NO-ACTAVIS-2014-14689

PATIENT
  Age: 82 Year
  Sex: Female

DRUGS (1)
  1. MODIFENAC [Suspect]
     Active Substance: DICLOFENAC
     Indication: BACK PAIN
     Dosage: 75 MG, DAILY (TOOK A TOTAL OF 3 TABLETS)
     Route: 048

REACTIONS (2)
  - Gastric ulcer [Recovering/Resolving]
  - Duodenal ulcer [Recovering/Resolving]

NARRATIVE: CASE EVENT DATE: 201404
